FAERS Safety Report 23314945 (Version 1)
Quarter: 2023Q4

REPORT INFORMATION
  Report Type: Spontaneous
  Country: GB (occurrence: GB)
  Receive Date: 20231219
  Receipt Date: 20231219
  Transmission Date: 20240110
  Serious: Yes (Other)
  Sender: FDA-Public Use
  Company Number: None

PATIENT

DRUGS (16)
  1. ACETAMINOPHEN [Suspect]
     Active Substance: ACETAMINOPHEN
     Indication: Product used for unknown indication
     Route: 048
  2. CLONAZEPAM [Concomitant]
     Active Substance: CLONAZEPAM
     Dosage: VARIABLE DOSE
     Dates: start: 20231104, end: 20231115
  3. CYCLIZINE [Concomitant]
     Active Substance: CYCLIZINE
     Route: 048
     Dates: start: 20231105, end: 20231112
  4. DIAZEPAM [Concomitant]
     Active Substance: DIAZEPAM
     Dosage: VARIABLE DOSE
     Dates: start: 20231016, end: 20231110
  5. BUTYLSCOPOLAMINE BROMIDE [Concomitant]
     Active Substance: BUTYLSCOPOLAMINE BROMIDE
     Route: 048
     Dates: start: 20231103, end: 20231106
  6. IBUPROFEN [Concomitant]
     Active Substance: IBUPROFEN
     Route: 048
     Dates: start: 20231128, end: 20231128
  7. LANSOPRAZOLE [Concomitant]
     Active Substance: LANSOPRAZOLE
     Dosage: 08:00
     Route: 048
     Dates: start: 20231208
  8. MEBEVERINE HYDROCHLORIDE [Concomitant]
     Active Substance: MEBEVERINE HYDROCHLORIDE
     Route: 048
     Dates: start: 20231106, end: 20231204
  9. METHADONE [Concomitant]
     Active Substance: METHADONE HYDROCHLORIDE
     Dosage: VARIABLE DOSE
     Dates: start: 20231020, end: 20231117
  10. METOCLOPRAMIDE [Concomitant]
     Active Substance: METOCLOPRAMIDE
     Dates: start: 20231104, end: 20231111
  11. METRONIDAZOLE [Concomitant]
     Active Substance: METRONIDAZOLE
     Route: 048
     Dates: start: 20231116, end: 20231123
  12. PEPPERMINT OIL [Concomitant]
     Active Substance: PEPPERMINT OIL
     Dosage: 1-2 CAPSULE
     Route: 048
     Dates: start: 20231030, end: 20231107
  13. PROMETHAZINE HYDROCHLORIDE [Concomitant]
     Active Substance: PROMETHAZINE HYDROCHLORIDE
     Route: 048
     Dates: start: 20231205, end: 20231208
  14. RIVAROXABAN [Concomitant]
     Active Substance: RIVAROXABAN
     Dosage: AT 08:00
     Route: 048
     Dates: start: 20231115
  15. THIAMINE [Concomitant]
     Active Substance: THIAMINE
     Route: 048
     Dates: start: 20231017, end: 20231114
  16. ZOPICLONE [Concomitant]
     Active Substance: ZOPICLONE
     Route: 048
     Dates: start: 20231124, end: 20231208

REACTIONS (1)
  - Anaphylactic reaction [Unknown]
